FAERS Safety Report 5235228-4 (Version None)
Quarter: 2007Q1

REPORT INFORMATION
  Report Type: 
  Country: None (occurrence: None)
  Receive Date: 20061208
  Receipt Date: 20060711
  Transmission Date: 20070707
  Serious: Yes (Other)
  Sender: FDA-Public Use
  Company Number: 2006UW14301

PATIENT
  Age: 53 Year
  Sex: Female
  Weight: 65.77 kg

DRUGS (3)
  1. CRESTOR [Suspect]
     Indication: HYPERCHOLESTEROLAEMIA
     Dosage: 5 MG HS PO
     Route: 047
     Dates: start: 20060710
  2. TOPROL-XL [Suspect]
     Indication: HYPERTENSION
     Dosage: 25 MG QD PO
     Route: 048
     Dates: start: 20060711
  3. LOTENSIN [Concomitant]

REACTIONS (4)
  - DIZZINESS [None]
  - LETHARGY [None]
  - MYALGIA [None]
  - NAUSEA [None]
